FAERS Safety Report 4616395-X (Version None)
Quarter: 2005Q1

REPORT INFORMATION
  Report Type: 
  Country: None (occurrence: None)
  Receive Date: 20050321
  Receipt Date: 20050310
  Transmission Date: 20050727
  Serious: Yes (Death, Hospitalization)
  Sender: FDA-Public Use
  Company Number: 2005-03-0638

PATIENT
  Age: 64 Year
  Sex: Male

DRUGS (4)
  1. TEMODAR [Suspect]
     Indication: GLIOBLASTOMA MULTIFORME
     Dosage: 130-320 MG ORAL; 130 MG QD ORAL; 320 MG QDX5D
     Route: 048
     Dates: start: 20040801, end: 20050103
  2. TEMODAR [Suspect]
     Indication: GLIOBLASTOMA MULTIFORME
     Dosage: 130-320 MG ORAL; 130 MG QD ORAL; 320 MG QDX5D
     Route: 048
     Dates: end: 20050103
  3. TEMODAR [Suspect]
     Indication: GLIOBLASTOMA MULTIFORME
     Dosage: 130-320 MG ORAL; 130 MG QD ORAL; 320 MG QDX5D
     Route: 048
     Dates: start: 20040801
  4. RADIATION THERAPY [Concomitant]

REACTIONS (4)
  - DISEASE PROGRESSION [None]
  - NOSOCOMIAL INFECTION [None]
  - PNEUMONIA [None]
  - STAPHYLOCOCCAL INFECTION [None]
